FAERS Safety Report 6096295-1 (Version None)
Quarter: 2009Q1

REPORT INFORMATION
  Report Type: 
  Country: None (occurrence: None)
  Receive Date: 20090227
  Receipt Date: 20081103
  Transmission Date: 20090719
  Serious: No
  Sender: FDA-Public Use
  Company Number: A0754614A

PATIENT
  Age: 27 Year
  Sex: Female

DRUGS (3)
  1. LAMICTAL [Suspect]
     Indication: BIPOLAR DISORDER
     Dosage: 100MG TWICE PER DAY
     Route: 048
     Dates: start: 20080701
  2. GEODON [Suspect]
     Indication: BIPOLAR DISORDER
     Route: 048
     Dates: start: 20080701
  3. WELLBUTRIN SR [Concomitant]

REACTIONS (3)
  - NAUSEA [None]
  - RETCHING [None]
  - VOMITING [None]
